FAERS Safety Report 12624367 (Version 3)
Quarter: 2016Q3

REPORT INFORMATION
  Report Type: Spontaneous
  Country: US (occurrence: US)
  Receive Date: 20160805
  Receipt Date: 20160819
  Transmission Date: 20161109
  Serious: Yes (Other)
  Sender: FDA-Public Use
  Company Number: US-HORIZON-BUP-0090-2016

PATIENT
  Age: 9 Year
  Sex: Female

DRUGS (1)
  1. BUPHENYL [Suspect]
     Active Substance: SODIUM PHENYLBUTYRATE
     Indication: UREA CYCLE ENZYME DEFICIENCY
     Dosage: 9 ML BID; INITIALLY TID

REACTIONS (3)
  - Abdominal pain upper [Recovered/Resolved]
  - Ammonia increased [Recovered/Resolved]
  - Vomiting [Recovered/Resolved]
